FAERS Safety Report 20491475 (Version 2)
Quarter: 2022Q1

REPORT INFORMATION
  Report Type: Report from Study
  Country: ES (occurrence: ES)
  Receive Date: 20220218
  Receipt Date: 20220308
  Transmission Date: 20220423
  Serious: Yes (Hospitalization, Other)
  Sender: FDA-Public Use
  Company Number: ES-AMGEN-ESPCT2022026550

PATIENT
  Age: 74 Year
  Sex: Male
  Weight: 56 kg

DRUGS (5)
  1. CARFILZOMIB [Suspect]
     Active Substance: CARFILZOMIB
     Indication: Plasma cell myeloma
     Dosage: UNK UNK, PER CHEMO REGIM
     Route: 065
  2. LENALIDOMIDE [Suspect]
     Active Substance: LENALIDOMIDE
     Indication: Plasma cell myeloma
     Dosage: 10 MILLIGRAM, PER CHEMO REGIM
     Route: 048
     Dates: start: 20190429
  3. DARATUMUMAB [Suspect]
     Active Substance: DARATUMUMAB
     Indication: Plasma cell myeloma
     Dosage: UNK UNK, PER CHEMO REGIM
     Route: 058
     Dates: start: 20190429
  4. LOSARTAN [Concomitant]
     Active Substance: LOSARTAN
     Indication: Hypertension
     Dosage: UNK
     Dates: start: 20190429
  5. ASPIRIN [Concomitant]
     Active Substance: ASPIRIN
     Indication: Prophylaxis
     Dosage: 100 UNK
     Route: 048
     Dates: start: 20190429

REACTIONS (1)
  - Acute coronary syndrome [Not Recovered/Not Resolved]

NARRATIVE: CASE EVENT DATE: 20220210
